FAERS Safety Report 9224388 (Version 1)
Quarter: 2013Q1

REPORT INFORMATION
  Report Type: Spontaneous
  Country: US (occurrence: None)
  Receive Date: 20120914
  Receipt Date: 20120914
  Transmission Date: 20140127
  Serious: Yes (Other)
  Sender: FDA-Public Use
  Company Number: JPI-P-021132

PATIENT
  Age: 56 Year
  Sex: Female
  Weight: 53.07 kg

DRUGS (5)
  1. XYREM (500 MG/ML SOLUTION)(SODIUM OXYBATE) [Suspect]
     Indication: INSOMNIA
     Route: 048
     Dates: start: 20120406, end: 201204
  2. CONJUGATED ESTROGENS [Concomitant]
  3. MEDROXYPROGESTERONE [Concomitant]
  4. NORTRIPTYLINE [Concomitant]
  5. SERTRALINE [Concomitant]

REACTIONS (8)
  - Blood pressure increased [None]
  - Visual field defect [None]
  - Anxiety [None]
  - Palpitations [None]
  - Hypoaesthesia [None]
  - Nausea [None]
  - Dysgeusia [None]
  - Confusional state [None]
